FAERS Safety Report 4478206-5 (Version None)
Quarter: 2004Q3

REPORT INFORMATION
  Report Type: 
  Country: None (occurrence: None)
  Receive Date: 20040923
  Receipt Date: 20040709
  Transmission Date: 20050211
  Serious: No
  Sender: FDA-Public Use
  Company Number: USA040671124

PATIENT
  Age: 80 Year
  Sex: Female

DRUGS (4)
  1. FORTEO [Suspect]
     Indication: OSTEOPOROSIS
     Dosage: 20 UG/1 DAY
     Dates: start: 20040625
  2. ESTRADERM [Concomitant]
  3. OXYTROL [Concomitant]
  4. OSCAL [Concomitant]

REACTIONS (4)
  - DIZZINESS [None]
  - INJECTION SITE JOINT SWELLING [None]
  - INJECTION SITE PRURITUS [None]
  - JOINT SWELLING [None]
